FAERS Safety Report 8037960 (Version 5)
Quarter: 2016Q2

REPORT INFORMATION
  Report Type: Spontaneous
  Country: US (occurrence: US)
  Receive Date: 20110715
  Receipt Date: 20160623
  Transmission Date: 20160815
  Serious: Yes (Other)
  Sender: FDA-Public Use
  Company Number: US-ASTRAZENECA-2011SE40566

PATIENT
  Age: 59 Year
  Sex: Male

DRUGS (61)
  1. BUDESONIDE. [Suspect]
     Active Substance: BUDESONIDE
     Route: 055
  2. ACETAMINOPHEN. [Concomitant]
     Active Substance: ACETAMINOPHEN
     Indication: PAIN
     Dosage: 2 DF, EVERY 4 HOURS AS NEEDED
     Route: 048
  3. CALCIUM CARBONATE. [Concomitant]
     Active Substance: CALCIUM CARBONATE
     Indication: DYSPEPSIA
     Route: 048
  4. CEFDINIR. [Concomitant]
     Active Substance: CEFDINIR
     Route: 048
  5. DOCUSATE SENNA [Concomitant]
     Indication: CONSTIPATION
     Route: 048
  6. RANITIDINE. [Concomitant]
     Active Substance: RANITIDINE
     Route: 048
  7. SUCRALFATE. [Concomitant]
     Active Substance: SUCRALFATE
     Route: 048
  8. NEXIUM [Suspect]
     Active Substance: ESOMEPRAZOLE MAGNESIUM
     Indication: PEPTIC ULCER
     Route: 048
  9. ASPIRIN. [Concomitant]
     Active Substance: ASPIRIN
  10. AZITHROMYCIN ANHYDROUS. [Concomitant]
     Active Substance: AZITHROMYCIN ANHYDROUS
     Route: 048
  11. DIAZEPAM. [Concomitant]
     Active Substance: DIAZEPAM
     Indication: MIGRAINE
     Dosage: 1 DF, EVERY 4  HOURS
     Route: 048
  12. FLUTICASONE [Concomitant]
     Active Substance: FLUTICASONE\FLUTICASONE PROPIONATE
     Dosage: 2 SPRAYS, BOTH NOSTRILS, DAILY
     Route: 045
  13. TORSEMIDE. [Concomitant]
     Active Substance: TORSEMIDE
     Route: 048
  14. NEXIUM [Suspect]
     Active Substance: ESOMEPRAZOLE MAGNESIUM
     Indication: GASTROOESOPHAGEAL REFLUX DISEASE
     Route: 048
  15. NEXIUM [Suspect]
     Active Substance: ESOMEPRAZOLE MAGNESIUM
     Indication: GASTRITIS
     Dosage: ESOMEPRAZOLE, 40 MG, TWO TIMES A DAY
     Route: 048
  16. NEXIUM [Suspect]
     Active Substance: ESOMEPRAZOLE MAGNESIUM
     Indication: GASTROOESOPHAGEAL REFLUX DISEASE
     Dosage: ESOMEPRAZOLE, 40 MG, TWO TIMES A DAY
     Route: 048
  17. ACCOLATE [Concomitant]
     Active Substance: ZAFIRLUKAST
  18. ALBUTEROL. [Concomitant]
     Active Substance: ALBUTEROL
     Indication: WHEEZING
     Dosage: 3 MILLILITER, NEBULIZED INHALATION, FOUR TIMES A DAY AS NEEDED
     Route: 055
  19. DILTIAZEM [Concomitant]
     Active Substance: DILTIAZEM
     Route: 048
  20. EPINEPHRINE. [Concomitant]
     Active Substance: EPINEPHRINE
     Route: 030
  21. FEXOFENADINE [Concomitant]
     Active Substance: FEXOFENADINE\FEXOFENADINE HYDROCHLORIDE
     Route: 048
  22. INSULIN GLARGINE [Concomitant]
     Active Substance: INSULIN GLARGINE
     Dosage: 26 UNITS, TWO TIMES A DAY
     Route: 058
  23. ANTICOAGULANT [Concomitant]
     Active Substance: UNSPECIFIED INGREDIENT
  24. ALBUTEROL. [Concomitant]
     Active Substance: ALBUTEROL
     Indication: WHEEZING
     Dosage: 90 UG, 2 PUFFS, EVERY 4 HOURS, AS NEEDED
     Route: 055
  25. AZELASTINE [Concomitant]
     Active Substance: AZELASTINE
     Indication: HYPERSENSITIVITY
     Dosage: 137 MCG, 1 SPRAY, BOTH NOSTRILS, TWO TIMES A DAY AS NEEDED
     Route: 045
  26. MOMETASONE [Concomitant]
     Active Substance: MOMETASONE
     Dosage: 120 DOSE 220 MCG, 2 PUFFS, TWO TIMES A DAY
     Route: 055
  27. ONDANSETRON [Concomitant]
     Active Substance: ONDANSETRON
     Indication: NAUSEA
     Route: 048
  28. NEXIUM [Suspect]
     Active Substance: ESOMEPRAZOLE MAGNESIUM
     Indication: GASTRITIS
     Route: 048
  29. BYDUREON [Concomitant]
     Active Substance: EXENATIDE
     Indication: DIABETES MELLITUS
     Route: 058
  30. ATORVASTATIN [Concomitant]
     Active Substance: ATORVASTATIN
     Route: 048
  31. DIAZEPAM. [Concomitant]
     Active Substance: DIAZEPAM
     Indication: MIGRAINE
     Dosage: 2 DF, EVERY 4  HOURS
     Route: 048
  32. OCCULAR LUBRICANT [Concomitant]
     Dosage: 1 DROP, BOTH EYES, TWO TIMES A DAY
  33. NEXIUM [Suspect]
     Active Substance: ESOMEPRAZOLE MAGNESIUM
     Indication: GASTROOESOPHAGEAL REFLUX DISEASE
     Route: 048
     Dates: start: 2007
  34. ALBUTEROL. [Concomitant]
     Active Substance: ALBUTEROL
     Indication: DYSPNOEA
     Dosage: 90 UG, 2 PUFFS, EVERY 4 HOURS, AS NEEDED
     Route: 055
  35. ALBUTEROL. [Concomitant]
     Active Substance: ALBUTEROL
     Indication: DYSPNOEA
     Dosage: 3 MILLILITER, NEBULIZED INHALATION, FOUR TIMES A DAY AS NEEDED
     Route: 055
  36. DIAZEPAM. [Concomitant]
     Active Substance: DIAZEPAM
     Indication: PAIN
     Dosage: 1 DF, EVERY 4  HOURS
     Route: 048
  37. NITROGLYCERIN. [Concomitant]
     Active Substance: NITROGLYCERIN
     Indication: CHEST PAIN
     Dosage: 1 DF, EVERY FIVE MINUTES AS NEEDED.
     Route: 060
  38. POLYETHYLENE GLYCOL [Concomitant]
     Active Substance: POLYETHYLENE GLYCOLS
     Route: 048
  39. PREGABALIN. [Concomitant]
     Active Substance: PREGABALIN
     Route: 048
  40. TAMSULOSIN [Concomitant]
     Active Substance: TAMSULOSIN
     Route: 048
  41. TIZANIDINE. [Concomitant]
     Active Substance: TIZANIDINE
     Dosage: 1.0DF EVERY 8 - 12 HOURS
     Route: 048
  42. TOPIRAMATE. [Concomitant]
     Active Substance: TOPIRAMATE
     Route: 048
  43. WARFARIN [Concomitant]
     Active Substance: WARFARIN
     Dosage: 7.5 MG TUESDAYS AND THURSDAYS, 5 MG OTHER DAYS
     Route: 048
  44. PLENDIL [Concomitant]
     Active Substance: FELODIPINE
  45. EZETIMIBE. [Concomitant]
     Active Substance: EZETIMIBE
     Indication: BLOOD CHOLESTEROL ABNORMAL
     Route: 048
  46. INSULIN LISPRO [Concomitant]
     Active Substance: INSULIN LISPRO
     Dosage: 24-32 UNITS, TWO TIMES A DAY
     Route: 058
  47. MONTELUKAST [Concomitant]
     Active Substance: MONTELUKAST SODIUM
     Route: 048
  48. ONDANSETRON [Concomitant]
     Active Substance: ONDANSETRON
     Indication: NAUSEA
     Route: 048
  49. OXYCODONE [Concomitant]
     Active Substance: OXYCODONE
     Indication: BACK PAIN
     Route: 048
  50. PANTOPRAZOLE [Concomitant]
     Active Substance: PANTOPRAZOLE SODIUM
     Indication: GASTROOESOPHAGEAL REFLUX DISEASE
     Route: 048
  51. RANOLAZINE [Concomitant]
     Active Substance: RANOLAZINE
     Route: 048
  52. NEXIUM [Suspect]
     Active Substance: ESOMEPRAZOLE MAGNESIUM
     Indication: PEPTIC ULCER
     Route: 048
     Dates: start: 2007
  53. NEXIUM [Suspect]
     Active Substance: ESOMEPRAZOLE MAGNESIUM
     Indication: GASTRITIS
     Route: 048
     Dates: start: 2007
  54. NEXIUM [Suspect]
     Active Substance: ESOMEPRAZOLE MAGNESIUM
     Indication: PEPTIC ULCER
     Dosage: ESOMEPRAZOLE, 40 MG, TWO TIMES A DAY
     Route: 048
  55. TOPROL XL [Concomitant]
     Active Substance: METOPROLOL SUCCINATE
  56. ALLOPURINOL. [Concomitant]
     Active Substance: ALLOPURINOL
     Indication: GOUT
     Route: 048
  57. CELECOXIB. [Concomitant]
     Active Substance: CELECOXIB
     Route: 048
  58. DIAZEPAM. [Concomitant]
     Active Substance: DIAZEPAM
     Indication: PAIN
     Dosage: 2 DF, EVERY 4  HOURS
     Route: 048
  59. OXYCODONE [Concomitant]
     Active Substance: OXYCODONE
     Indication: HEADACHE
     Route: 048
  60. SALMETEROL [Concomitant]
     Active Substance: SALMETEROL
     Dosage: 1 PUFF, TWO TIMES A DAY
     Route: 055
  61. TOPIRAMATE. [Concomitant]
     Active Substance: TOPIRAMATE
     Route: 048

REACTIONS (6)
  - Drug dose omission [Not Recovered/Not Resolved]
  - Gastric ulcer haemorrhage [Unknown]
  - Cardiac disorder [Unknown]
  - Drug hypersensitivity [Unknown]
  - Off label use [Unknown]
  - Gastric disorder [Unknown]

NARRATIVE: CASE EVENT DATE: 20150522
